FAERS Safety Report 6218491-2 (Version None)
Quarter: 2009Q2

REPORT INFORMATION
  Report Type: 
  Country: None (occurrence: None)
  Receive Date: 20090608
  Receipt Date: 20090601
  Transmission Date: 20091009
  Serious: Yes (Other)
  Sender: FDA-Public Use
  Company Number: B0577591A

PATIENT
  Age: 11 Year
  Sex: Male

DRUGS (1)
  1. AVAMYS [Suspect]
     Dosage: 1UNIT PER DAY
     Route: 045
     Dates: start: 20080301, end: 20080301

REACTIONS (3)
  - ERYTHEMA [None]
  - EYE OEDEMA [None]
  - EYE PRURITUS [None]
